FAERS Safety Report 20763703 (Version 3)
Quarter: 2022Q2

REPORT INFORMATION
  Report Type: Spontaneous
  Country: JP (occurrence: JP)
  Receive Date: 20220428
  Receipt Date: 20220516
  Transmission Date: 20220721
  Serious: Yes (Hospitalization)
  Sender: FDA-Public Use
  Company Number: JP-JNJFOC-20220453937

PATIENT
  Age: 91 Year
  Sex: Female

DRUGS (1)
  1. REMINYL [Suspect]
     Active Substance: GALANTAMINE
     Indication: Dementia Alzheimer^s type
     Dosage: DOSE UNKNOWN
     Route: 048

REACTIONS (4)
  - Pyelitis [Recovering/Resolving]
  - Dehydration [Recovering/Resolving]
  - Renal failure [Unknown]
  - Insomnia [Recovering/Resolving]

NARRATIVE: CASE EVENT DATE: 20220401
